FAERS Safety Report 7503145-2 (Version None)
Quarter: 2011Q2

REPORT INFORMATION
  Report Type: 
  Country: None (occurrence: None)
  Receive Date: 20110525
  Receipt Date: 20101026
  Transmission Date: 20111010
  Serious: No
  Sender: FDA-Public Use
  Company Number: US-NOVEN-ALL1-2010-05561

PATIENT
  Sex: Male
  Weight: 20.408 kg

DRUGS (4)
  1. DAYTRANA [Suspect]
     Dosage: 10 MG, 1X/DAY:QD
     Route: 062
     Dates: start: 20100928
  2. ZYRTEC [Concomitant]
     Dosage: 5 MG, 1X/DAY:QD
     Route: 048
  3. ABILIFY [Concomitant]
     Dosage: 2 MG, 1X/DAY:QD
     Route: 048
     Dates: start: 20100928
  4. GLYCOLAX [Concomitant]
     Dosage: 16 G, 1X/DAY:QD
     Route: 048

REACTIONS (2)
  - APPLICATION SITE SWELLING [None]
  - APPLICATION SITE ERYTHEMA [None]
